FAERS Safety Report 9692325 (Version 1)
Quarter: 2013Q4

REPORT INFORMATION
  Report Type: Spontaneous
  Country: US (occurrence: US)
  Receive Date: 20131118
  Receipt Date: 20131118
  Transmission Date: 20140711
  Serious: No
  Sender: FDA-Public Use
  Company Number: US-009507513-1311USA005385

PATIENT
  Sex: 0

DRUGS (1)
  1. INVANZ [Suspect]
     Dosage: 1 GRAM 10 BOTTLES OF 1
     Route: 042

REACTIONS (3)
  - Wrong technique in drug usage process [Unknown]
  - No adverse event [Unknown]
  - Product quality issue [Unknown]
